FAERS Safety Report 11074935 (Version 1)
Quarter: 2015Q2

REPORT INFORMATION
  Report Type: Spontaneous
  Country: US (occurrence: None)
  Receive Date: 20150428
  Receipt Date: 20150428
  Transmission Date: 20150821
  Serious: Yes (Disabling, Other)
  Sender: FDA-Public Use
  Company Number: None

PATIENT
  Age: 60 Year
  Sex: Male
  Weight: 72.58 kg

DRUGS (10)
  1. CYMBALTA [Concomitant]
     Active Substance: DULOXETINE HYDROCHLORIDE
  2. ACETYL L [Concomitant]
  3. VITAMIN B6 [Concomitant]
     Active Substance: PYRIDOXINE HYDROCHLORIDE
  4. SYNTHROID [Concomitant]
     Active Substance: LEVOTHYROXINE SODIUM
  5. PEGASYS [Suspect]
     Active Substance: PEGINTERFERON ALFA-2A
     Indication: HEPATITIS C
     Dosage: ONE INJECTION PERWEEK WEEKLY GIVEN INTO/UNDER THE SKIN
  6. CARNITINE [Concomitant]
     Active Substance: CARNITINE
  7. LITHIUM. [Concomitant]
     Active Substance: LITHIUM
  8. ALPHA LIPOIC ACID [Concomitant]
     Active Substance: .ALPHA.-LIPOIC ACID
  9. GLUTAMINE POWDER [Concomitant]
  10. CONCERTA [Concomitant]
     Active Substance: METHYLPHENIDATE HYDROCHLORIDE

REACTIONS (8)
  - Paraesthesia [None]
  - Retinal vascular disorder [None]
  - Sinus disorder [None]
  - Gingival pain [None]
  - Oral discomfort [None]
  - Glossodynia [None]
  - Tinnitus [None]
  - Burning sensation [None]

NARRATIVE: CASE EVENT DATE: 20130224
